FAERS Safety Report 4522419-0 (Version None)
Quarter: 2004Q4

REPORT INFORMATION
  Report Type: 
  Country: None (occurrence: None)
  Receive Date: 20041209
  Receipt Date: 20040930
  Transmission Date: 20050328
  Serious: Yes (Other)
  Sender: FDA-Public Use
  Company Number: PHEH2004US10772

PATIENT
  Age: 70 Year
  Sex: Female
  Weight: 46 kg

DRUGS (7)
  1. TAMOXIFEN CITRATE [Concomitant]
     Dates: start: 19990101
  2. FEMARA [Concomitant]
     Dates: start: 20020101, end: 20030505
  3. AROMYCIN [Concomitant]
     Dates: start: 20031127, end: 20030505
  4. ARIMIDEX [Concomitant]
     Dates: start: 20030915, end: 20040307
  5. MEGACE [Concomitant]
     Dosage: 5 ML, QD
     Dates: start: 20020201, end: 20021023
  6. ZOMETA [Suspect]
     Indication: METASTASES TO BONE
     Dosage: 4 MG, UNK
     Route: 065
     Dates: start: 20020501, end: 20041023
  7. XELODA [Concomitant]
     Dosage: 2000 MG, QD
     Dates: start: 20040307

REACTIONS (4)
  - OSTEOMYELITIS [None]
  - PAIN [None]
  - SWELLING FACE [None]
  - TOOTH ABSCESS [None]
